FAERS Safety Report 25028565 (Version 1)
Quarter: 2025Q1

REPORT INFORMATION
  Report Type: Spontaneous
  Country: DE (occurrence: DE)
  Receive Date: 20250302
  Receipt Date: 20250302
  Transmission Date: 20250408
  Serious: Yes (Hospitalization)
  Sender: AUROBINDO
  Company Number: DE-AstraZeneca-CH-00790356A

PATIENT
  Sex: Female

DRUGS (2)
  1. FULVESTRANT [Suspect]
     Active Substance: FULVESTRANT
     Indication: Breast cancer metastatic
     Dosage: 500 MILLIGRAM, EVERY WEEK (500 MILLIGRAM, Q2W)
     Route: 030
  2. TRUQAP [Suspect]
     Active Substance: CAPIVASERTIB
     Indication: Breast cancer metastatic
     Dosage: 800 MILLIGRAM, ONCE A DAY (400 MILLIGRAM)
     Route: 048

REACTIONS (3)
  - Diarrhoea [Recovering/Resolving]
  - Liver function test increased [Recovering/Resolving]
  - Tumour marker increased [Recovering/Resolving]
